FAERS Safety Report 7378046-3 (Version None)
Quarter: 2011Q1

REPORT INFORMATION
  Report Type: 
  Country: None (occurrence: None)
  Receive Date: 20110317
  Receipt Date: 20110225
  Transmission Date: 20110831
  Serious: Yes (Hospitalization)
  Sender: FDA-Public Use
  Company Number: JPI-P-014054

PATIENT
  Age: 40 Year
  Sex: Female
  Weight: 92.9874 kg

DRUGS (17)
  1. FOLATE [Concomitant]
  2. LORAZEPAM [Concomitant]
  3. ROPINIROLE [Concomitant]
  4. PHENOBARBITAL SRT [Concomitant]
  5. XYREM [Suspect]
     Indication: INSOMNIA
     Dosage: ORAL ; 9 GM (4.5 GM,2 IN 1 D),ORAL
     Route: 048
     Dates: start: 20100101
  6. XYREM [Suspect]
     Indication: NARCOLEPSY
     Dosage: ORAL ; 9 GM (4.5 GM,2 IN 1 D),ORAL
     Route: 048
     Dates: start: 20100101
  7. TOPIRAMATE [Concomitant]
  8. LEVOTHYROXINE [Concomitant]
  9. MULTI-VITAMINS [Concomitant]
  10. QUETIAPINE FUMARATE [Concomitant]
  11. LIOTHYRONINE SODIUM [Concomitant]
  12. METFORMIN HCL [Concomitant]
  13. ESCITALOPRAM OXALATE [Concomitant]
  14. ARIPIPRAZOLE [Suspect]
     Indication: PRODUCT USED FOR UNKNOWN INDICATION
     Dates: start: 20110214, end: 20110214
  15. BUSPIRONE HCL [Concomitant]
  16. CLONAZEPAM [Concomitant]
  17. MODAFINIL [Concomitant]

REACTIONS (14)
  - FLUSHING [None]
  - HALLUCINATIONS, MIXED [None]
  - DEPRESSION [None]
  - ANXIETY [None]
  - AGGRESSION [None]
  - PYREXIA [None]
  - TACHYCARDIA [None]
  - NAUSEA [None]
  - MUSCLE TWITCHING [None]
  - TREMOR [None]
  - ANGER [None]
  - DIZZINESS [None]
  - CONDITION AGGRAVATED [None]
  - FEELING ABNORMAL [None]
